FAERS Safety Report 20534052 (Version 1)
Quarter: 2022Q1

REPORT INFORMATION
  Report Type: Spontaneous
  Country: BE (occurrence: BE)
  Receive Date: 20220301
  Receipt Date: 20220301
  Transmission Date: 20220424
  Serious: Yes (Hospitalization)
  Sender: FDA-Public Use
  Company Number: BE-Accord-254196

PATIENT
  Age: 63 Year
  Sex: Male
  Weight: 79 kg

DRUGS (41)
  1. RITUXIMAB [Suspect]
     Active Substance: RITUXIMAB
     Indication: Product used for unknown indication
     Route: 041
     Dates: start: 20210804, end: 20211014
  2. DEXAMETHASONE [Suspect]
     Active Substance: DEXAMETHASONE
     Indication: Product used for unknown indication
     Dosage: FOR 4 DAYS, 21 DAY CYCLE
     Route: 042
     Dates: start: 20210804, end: 20211017
  3. EPCORITAMAB [Suspect]
     Active Substance: EPCORITAMAB
     Indication: Product used for unknown indication
     Dosage: FULL DOSE, SINGLE, WEEKLY
     Route: 058
     Dates: start: 20210819, end: 20211104
  4. EPCORITAMAB [Suspect]
     Active Substance: EPCORITAMAB
     Dosage: PRIMING DOSE, SINGLE
     Route: 058
     Dates: start: 20210804, end: 20210804
  5. EPCORITAMAB [Suspect]
     Active Substance: EPCORITAMAB
     Dosage: INTERMEDIATE DOSE, SINGLE
     Route: 058
     Dates: start: 20210811, end: 20210811
  6. CARBOPLATIN [Suspect]
     Active Substance: CARBOPLATIN
     Indication: Product used for unknown indication
     Route: 042
     Dates: start: 20210914, end: 20210914
  7. CARBOPLATIN [Suspect]
     Active Substance: CARBOPLATIN
     Dosage: 1Q3W
     Route: 042
     Dates: start: 20211014, end: 20211014
  8. CARBOPLATIN [Suspect]
     Active Substance: CARBOPLATIN
     Dosage: 1Q3W
     Route: 065
     Dates: start: 20210804, end: 20210804
  9. CYTARABINE [Suspect]
     Active Substance: CYTARABINE
     Indication: Product used for unknown indication
     Route: 042
     Dates: start: 20210804, end: 20211015
  10. FILGRASTIM [Concomitant]
     Active Substance: FILGRASTIM
     Dates: start: 20211018
  11. ACYCLOVIR [Concomitant]
     Active Substance: ACYCLOVIR
     Dates: start: 20210721
  12. XALATAN [Concomitant]
     Active Substance: LATANOPROST
     Dosage: 0.005 PERCENT
     Dates: start: 20210718
  13. ACETAMINOPHEN [Concomitant]
     Active Substance: ACETAMINOPHEN
     Dates: start: 20211024, end: 20211025
  14. HYALURONATE SODIUM\TREHALOSE [Concomitant]
     Active Substance: HYALURONATE SODIUM\TREHALOSE
     Dates: start: 20210804
  15. BACTRIM [Concomitant]
     Active Substance: SULFAMETHOXAZOLE\TRIMETHOPRIM
     Dates: start: 20210718
  16. LISINOPRIL [Concomitant]
     Active Substance: LISINOPRIL
     Dates: start: 20210917
  17. TRAMADOL HYDROCHLORIDE [Concomitant]
     Active Substance: TRAMADOL HYDROCHLORIDE
     Dates: start: 20210718
  18. MEDROL [Concomitant]
     Active Substance: METHYLPREDNISOLONE
     Dates: start: 20211018, end: 20211021
  19. LASIX [Concomitant]
     Active Substance: FUROSEMIDE
     Dates: start: 20211016, end: 20211029
  20. CHOLECALCIFEROL [Concomitant]
     Active Substance: CHOLECALCIFEROL
     Dates: start: 20210718
  21. ZYRTEC (BELGIUM) [Concomitant]
     Route: 048
     Dates: start: 20211104, end: 20211104
  22. CIPROFLOXACIN [Concomitant]
     Active Substance: CIPROFLOXACIN
     Dates: start: 20211026, end: 20211101
  23. PIPERACILLIN SODIUM\TAZOBACTAM SODIUM [Concomitant]
     Active Substance: PIPERACILLIN SODIUM\TAZOBACTAM SODIUM
     Dates: start: 20211025, end: 20211028
  24. ENOXAPARIN SODIUM [Concomitant]
     Active Substance: ENOXAPARIN SODIUM
     Dates: start: 20210930
  25. ONDANSETRON [Concomitant]
     Active Substance: ONDANSETRON
     Dates: start: 20210804
  26. BUMETANIDE [Concomitant]
     Active Substance: BUMETANIDE
     Dates: start: 20211002
  27. MOVICOL [Concomitant]
     Active Substance: POLYETHYLENE GLYCOL 3350\POTASSIUM CHLORIDE\SODIUM BICARBONATE\SODIUM CHLORIDE
     Dates: start: 20210810
  28. ALLOPURINOL [Concomitant]
     Active Substance: ALLOPURINOL
     Dates: start: 20211017
  29. OMEPRAZOLE [Concomitant]
     Active Substance: OMEPRAZOLE
     Dates: start: 20210719
  30. ASPIRIN [Concomitant]
     Active Substance: ASPIRIN
     Dates: start: 20210827
  31. ARANESP [Concomitant]
     Active Substance: DARBEPOETIN ALFA
     Dates: start: 20211013
  32. FOLIC ACID [Concomitant]
     Active Substance: FOLIC ACID
     Dates: start: 20211015
  33. ALIZAPRIDE HYDROCHLORIDE [Concomitant]
     Active Substance: ALIZAPRIDE HYDROCHLORIDE
     Dates: start: 20211028, end: 20211028
  34. DEXAMETHASONE SODIUM PHOSPHATE [Concomitant]
     Active Substance: DEXAMETHASONE SODIUM PHOSPHATE
     Dates: start: 20210804
  35. ESOMEPRAZOLE [Concomitant]
     Active Substance: ESOMEPRAZOLE
     Dates: start: 20210718
  36. BISOPROLOL [Concomitant]
     Active Substance: BISOPROLOL
     Dates: start: 20210827
  37. LIPITOR [Concomitant]
     Active Substance: ATORVASTATIN CALCIUM
     Dates: start: 20210909
  38. MAGNESIUM [Concomitant]
     Active Substance: MAGNESIUM
     Dates: start: 20211002, end: 20211018
  39. FLUCONAZOLE [Concomitant]
     Active Substance: FLUCONAZOLE
     Dates: start: 20210804
  40. AMOXICILLIN\CLAVULANATE POTASSIUM [Concomitant]
     Active Substance: AMOXICILLIN\CLAVULANATE POTASSIUM
     Dates: start: 20211021, end: 20211024
  41. FEBUXOSTAT [Concomitant]
     Active Substance: FEBUXOSTAT

REACTIONS (1)
  - Acute kidney injury [Recovered/Resolved]

NARRATIVE: CASE EVENT DATE: 20211112
